FAERS Safety Report 20902285 (Version 1)
Quarter: 2022Q2

REPORT INFORMATION
  Report Type: Spontaneous
  Country: US (occurrence: None)
  Receive Date: 20220601
  Receipt Date: 20220601
  Transmission Date: 20220721
  Serious: Yes (Other)
  Sender: FDA-Public Use
  Company Number: None

PATIENT
  Age: 70 Year
  Sex: Female
  Weight: 71.1 kg

DRUGS (3)
  1. SUPREP BOWEL PREP [Suspect]
     Active Substance: MAGNESIUM SULFATE\POTASSIUM SULFATE\SODIUM SULFATE
     Indication: Colonoscopy
     Route: 048
     Dates: start: 20220526, end: 20220526
  2. VITAMIN D3 [Concomitant]
     Active Substance: CHOLECALCIFEROL
  3. Complex Vitamin B [Concomitant]

REACTIONS (5)
  - Vomiting projectile [None]
  - Lethargy [None]
  - Asthenia [None]
  - Headache [None]
  - Therapy cessation [None]

NARRATIVE: CASE EVENT DATE: 20220526
